FAERS Safety Report 7874942-9 (Version None)
Quarter: 2011Q4

REPORT INFORMATION
  Report Type: 
  Country: None (occurrence: None)
  Receive Date: 20111031
  Receipt Date: 20111025
  Transmission Date: 20120403
  Serious: No
  Sender: FDA-Public Use
  Company Number: US-JNJFOC-20111011778

PATIENT
  Sex: Female
  Weight: 91.17 kg

DRUGS (3)
  1. MORPHINE SULFATE [Concomitant]
     Indication: PAIN
     Route: 048
     Dates: start: 20100101
  2. NEURONTIN [Concomitant]
     Indication: NERVE INJURY
     Route: 048
     Dates: start: 20100101
  3. DURAGESIC-100 [Suspect]
     Indication: PAIN
     Dosage: 100 MCG + 50MCG
     Route: 062
     Dates: start: 20100101

REACTIONS (2)
  - WRONG TECHNIQUE IN DRUG USAGE PROCESS [None]
  - PRODUCT QUALITY ISSUE [None]
